FAERS Safety Report 12622905 (Version 2)
Quarter: 2016Q3

REPORT INFORMATION
  Report Type: Spontaneous
  Country: US (occurrence: US)
  Receive Date: 20160804
  Receipt Date: 20160909
  Transmission Date: 20161109
  Serious: Yes (Hospitalization, Other)
  Sender: FDA-Public Use
  Company Number: US-009507513-1608USA002377

PATIENT
  Age: 29 Year
  Sex: Female
  Weight: 100.23 kg

DRUGS (1)
  1. NUVARING [Suspect]
     Active Substance: ETHINYL ESTRADIOL\ETONOGESTREL
     Indication: CONTRACEPTION
     Dosage: 3 WEEKS VAGINAL, REMOVE, 1 WEEK RING FREE
     Route: 067
     Dates: start: 2011, end: 20160724

REACTIONS (2)
  - Cerebrovascular accident [Unknown]
  - Aphasia [Not Recovered/Not Resolved]

NARRATIVE: CASE EVENT DATE: 20160721
